FAERS Safety Report 22947056 (Version 2)
Quarter: 2023Q4

REPORT INFORMATION
  Report Type: Report from Study
  Country: GB (occurrence: None)
  Receive Date: 20230915
  Receipt Date: 20231030
  Transmission Date: 20240110
  Serious: Yes (Death)
  Sender: FDA-Public Use
  Company Number: GB-ROCHE-3421532

PATIENT
  Age: 52 Year
  Sex: Female

DRUGS (2)
  1. DKN-01 [Suspect]
     Active Substance: DKN-01
     Indication: Gastrooesophageal cancer
     Dosage: ON 05/MAY/20232, SHE RECEIVED LAST DOSE OF DKN 01 600 MG.
     Route: 042
  2. ATEZOLIZUMAB [Suspect]
     Active Substance: ATEZOLIZUMAB
     Indication: Gastrooesophageal cancer
     Dosage: ON 05/MAY/2023, SHE RECEIVED DOSE OF ATEZOLIZUMAB 840 MG.
     Route: 041

REACTIONS (1)
  - Colitis [Fatal]

NARRATIVE: CASE EVENT DATE: 20230901
